FAERS Safety Report 14572130 (Version 3)
Quarter: 2018Q2

REPORT INFORMATION
  Report Type: Spontaneous
  Country: GR (occurrence: GR)
  Receive Date: 20180226
  Receipt Date: 20180410
  Transmission Date: 20180711
  Serious: Yes (Other)
  Sender: FDA-Public Use
  Company Number: GR-INCYTE CORPORATION-2018IN001644

PATIENT

DRUGS (6)
  1. JAKAVI [Suspect]
     Active Substance: RUXOLITINIB
     Indication: MYELOFIBROSIS
     Dosage: 10 MG, BID
     Route: 065
     Dates: start: 201706
  2. JAKAVI [Suspect]
     Active Substance: RUXOLITINIB
     Dosage: 10 MG, (QD EVERY OTHER DAY AND BID EVERY OTHER DAY)
     Route: 065
     Dates: start: 201709
  3. JAKAVI [Suspect]
     Active Substance: RUXOLITINIB
     Dosage: 10 MG, QD
     Route: 065
     Dates: start: 201708
  4. JAKAVI [Suspect]
     Active Substance: RUXOLITINIB
     Dosage: 10 MG, QD
     Route: 065
     Dates: end: 201711
  5. ERYTHROPOIETIN [Concomitant]
     Active Substance: ERYTHROPOIETIN
     Indication: PRODUCT USED FOR UNKNOWN INDICATION
     Route: 065
  6. NEXIUM [Concomitant]
     Active Substance: ESOMEPRAZOLE MAGNESIUM
     Indication: PRODUCT USED FOR UNKNOWN INDICATION
     Dosage: UNK
     Route: 065

REACTIONS (8)
  - Haematocrit decreased [Recovered/Resolved]
  - Platelet count decreased [Recovered/Resolved]
  - Inappropriate schedule of drug administration [Recovered/Resolved]
  - Haemolysis [Recovered/Resolved]
  - Jaundice [Recovered/Resolved]
  - Haemolytic anaemia [Recovered/Resolved]
  - Haptoglobin decreased [Recovered/Resolved]
  - Blood bilirubin decreased [Recovered/Resolved]

NARRATIVE: CASE EVENT DATE: 201708
